FAERS Safety Report 7912722-6 (Version None)
Quarter: 2011Q4

REPORT INFORMATION
  Report Type: 
  Country: None (occurrence: None)
  Receive Date: 20111114
  Receipt Date: 20111109
  Transmission Date: 20120403
  Serious: Yes (Other)
  Sender: FDA-Public Use
  Company Number: SE-PFIZER INC-2011265168

PATIENT
  Age: 80 Year
  Sex: Female
  Weight: 75 kg

DRUGS (10)
  1. COZAAR [Concomitant]
     Dosage: UNK
  2. NORVASC [Suspect]
     Dosage: UNK
  3. LEVOTHYROXINE SODIUM [Concomitant]
     Dosage: 100 UG, 1X/DAY
  4. CENTYL MITE [Concomitant]
     Dosage: UNK
  5. NORVASC [Suspect]
     Dosage: 5 MG, 1X/DAY
     Dates: start: 20111019
  6. SPIRONOLACTONE [Concomitant]
     Dosage: UNK
  7. DOXAZOSIN [Concomitant]
     Dosage: UNK
  8. DIOVAN [Concomitant]
     Dosage: UNK
  9. NORVASC [Suspect]
     Indication: ESSENTIAL HYPERTENSION
     Dosage: 2.5 MG, 1X/DAY
     Dates: start: 20111012, end: 20111018
  10. NORVASC [Suspect]
     Dosage: 5 MG, 1X/DAY

REACTIONS (3)
  - BLOOD PRESSURE SYSTOLIC DECREASED [None]
  - SOMNOLENCE [None]
  - DEPRESSED LEVEL OF CONSCIOUSNESS [None]
